FAERS Safety Report 7513634-2 (Version None)
Quarter: 2011Q2

REPORT INFORMATION
  Report Type: 
  Country: None (occurrence: None)
  Receive Date: 20110531
  Receipt Date: 20110520
  Transmission Date: 20111010
  Serious: Yes (Hospitalization)
  Sender: FDA-Public Use
  Company Number: FR-BAYER-2011-039944

PATIENT
  Age: 24 Year
  Sex: Female

DRUGS (1)
  1. MIRENA [Suspect]
     Dosage: 20 ?G, CONT
     Route: 015
     Dates: start: 20090831

REACTIONS (6)
  - ABDOMINAL PAIN [None]
  - STRESS [None]
  - ANXIETY [None]
  - DEVICE DISLOCATION [None]
  - MIGRAINE [None]
  - NAUSEA [None]
